FAERS Safety Report 4563740-X (Version None)
Quarter: 2005Q1

REPORT INFORMATION
  Report Type: 
  Country: None (occurrence: None)
  Receive Date: 20050112
  Receipt Date: 20050112
  Transmission Date: 20050727
  Serious: Yes (Other)
  Sender: FDA-Public Use
  Company Number: None

PATIENT

DRUGS (2)
  1. HYDROCODONE - GENERIC [Suspect]
     Dosage: 1 PO Q4H PRN
     Route: 048
     Dates: start: 20020101
  2. CHLORZOXAZONE [Suspect]
     Dosage: 1 PO TID
     Route: 048
     Dates: start: 20000101

REACTIONS (1)
  - DRUG INEFFECTIVE [None]
